FAERS Safety Report 18478576 (Version 2)
Quarter: 2021Q1

REPORT INFORMATION
  Report Type: Spontaneous
  Country: ES (occurrence: ES)
  Receive Date: 20201109
  Receipt Date: 20210317
  Transmission Date: 20210419
  Serious: Yes (Disabling)
  Sender: FDA-Public Use
  Company Number: ES-ROCHE-2710125

PATIENT
  Age: 63 Year
  Sex: Female
  Weight: 69 kg

DRUGS (5)
  1. VELCADE [Suspect]
     Active Substance: BORTEZOMIB
     Indication: WALDENSTROM^S MACROGLOBULINAEMIA
     Route: 042
     Dates: start: 20160523
  2. VELCADE [Suspect]
     Active Substance: BORTEZOMIB
     Dosage: ON DAYS 1?8?15
     Route: 042
     Dates: start: 20160419
  3. DEXAMETHASONE. [Suspect]
     Active Substance: DEXAMETHASONE
     Indication: WALDENSTROM^S MACROGLOBULINAEMIA
     Dosage: (DAYS 1, 8, 15 AND 22) FOR 3 CYCLES.?MOST RECENT DOSE PRIOR TO AE 09/AUG/2016
     Route: 048
     Dates: start: 20160419
  4. RITUXIMAB. [Suspect]
     Active Substance: RITUXIMAB
     Indication: WALDENSTROM^S MACROGLOBULINAEMIA
     Dosage: ON DAYS 1?8?15?22 OF THE FIRST CYCLE?MOST RECENT DOSE PRIOR TO AE 12/MAY2016
     Route: 041
     Dates: start: 20160419
  5. VELCADE [Suspect]
     Active Substance: BORTEZOMIB
     Dosage: ON DAYS 1?8?15
     Route: 042
     Dates: start: 20190719

REACTIONS (5)
  - Haemorrhagic diathesis [Recovered/Resolved]
  - Peripheral sensory neuropathy [Recovered/Resolved with Sequelae]
  - Product use in unapproved indication [Unknown]
  - Off label use [Unknown]
  - Diarrhoea [Recovered/Resolved with Sequelae]

NARRATIVE: CASE EVENT DATE: 20160512
